FAERS Safety Report 12728518 (Version 3)
Quarter: 2016Q4

REPORT INFORMATION
  Report Type: Spontaneous
  Country: US (occurrence: US)
  Receive Date: 20160909
  Receipt Date: 20161212
  Transmission Date: 20170207
  Serious: Yes (Death, Other)
  Sender: FDA-Public Use
  Company Number: US-PFIZER INC-2016417970

PATIENT
  Age: 72 Year
  Sex: Male

DRUGS (1)
  1. XELJANZ [Suspect]
     Active Substance: TOFACITINIB CITRATE
     Dosage: UNK (STRENTH 5 MG)

REACTIONS (4)
  - Haemorrhage [Unknown]
  - Fall [Unknown]
  - Death [Fatal]
  - Foot fracture [Unknown]

NARRATIVE: CASE EVENT DATE: 20161018
